FAERS Safety Report 24532081 (Version 1)
Quarter: 2024Q4

REPORT INFORMATION
  Report Type: Spontaneous
  Country: IN (occurrence: IN)
  Receive Date: 20241022
  Receipt Date: 20241022
  Transmission Date: 20250115
  Serious: Yes (Other)
  Sender: NOVARTIS
  Company Number: IN-SANDOZ-SDZ2024IN087239

PATIENT
  Sex: Male

DRUGS (2)
  1. TACROLIMUS [Suspect]
     Active Substance: TACROLIMUS
     Indication: Renal transplant
     Dosage: 4 MG, QD, (2 MG, BID)
     Route: 048
  2. MYFORTIC [Suspect]
     Active Substance: MYCOPHENOLATE SODIUM
     Indication: Renal transplant
     Dosage: 360 MG, QD, (180 MG, BID)
     Route: 048

REACTIONS (8)
  - Abdominal sepsis [Unknown]
  - Acute kidney injury [Unknown]
  - Inguinal hernia [Unknown]
  - Asthenia [Unknown]
  - Electrolyte imbalance [Unknown]
  - Headache [Unknown]
  - Diarrhoea [Unknown]
  - Weight decreased [Unknown]
